FAERS Safety Report 8888678 (Version 3)
Quarter: 2013Q1

REPORT INFORMATION
  Report Type: Spontaneous
  Country: US (occurrence: US)
  Receive Date: 20121106
  Receipt Date: 20130109
  Transmission Date: 20140127
  Serious: Yes (Hospitalization, Congenital Anomaly)
  Sender: FDA-Public Use
  Company Number: US-GLAXOSMITHKLINE-A0999789A

PATIENT
  Age: 0 Year
  Sex: Male

DRUGS (1)
  1. PAXIL [Suspect]
     Indication: PRODUCT USED FOR UNKNOWN INDICATION
     Route: 064

REACTIONS (13)
  - Cleft palate [Not Recovered/Not Resolved]
  - Cytogenetic abnormality [Unknown]
  - Nervous system disorder [Unknown]
  - Convulsion [Unknown]
  - Hypospadias [Unknown]
  - Hiatus hernia [Unknown]
  - Congenital heart valve disorder [Unknown]
  - Hypotonia [Unknown]
  - Congenital eye disorder [Unknown]
  - Congenital hearing disorder [Unknown]
  - Gastrostomy [Unknown]
  - Developmental delay [Unknown]
  - Foetal exposure during pregnancy [Unknown]
